FAERS Safety Report 23952239 (Version 1)
Quarter: 2024Q2

REPORT INFORMATION
  Report Type: Spontaneous
  Country: JP (occurrence: None)
  Receive Date: 20240607
  Receipt Date: 20240607
  Transmission Date: 20240716
  Serious: Yes (Hospitalization)
  Sender: FDA-Public Use
  Company Number: 2024A130769

PATIENT
  Age: 60 Year

DRUGS (7)
  1. EVUSHELD [Suspect]
     Active Substance: CILGAVIMAB\TIXAGEVIMAB
     Indication: COVID-19 prophylaxis
     Dosage: DOSE UNKNOWN
     Route: 030
  2. GAZYVA [Concomitant]
     Active Substance: OBINUTUZUMAB
     Indication: Follicular lymphoma
     Dosage: DOSE UNKNOWN
     Route: 065
  3. BENDAMUSTINE HYDROCHLORIDE [Concomitant]
     Active Substance: BENDAMUSTINE HYDROCHLORIDE
     Indication: Follicular lymphoma
     Dosage: DOSE UNKNOWN
     Route: 065
  4. REMITORO [Concomitant]
     Indication: Follicular lymphoma
     Dosage: DOSE UNKNOWN, 5D
     Route: 065
  5. RITUXIMAB [Concomitant]
     Active Substance: RITUXIMAB
     Indication: Follicular lymphoma
     Dosage: DOSE UNKNOWN
     Route: 065
  6. MOLNUPIRAVIR [Concomitant]
     Active Substance: MOLNUPIRAVIR
     Dosage: DOSE UNKNOWN
     Route: 065
  7. ENCORAFENIB [Concomitant]
     Active Substance: ENCORAFENIB
     Indication: Follicular lymphoma
     Dosage: DOSE UNKNOWN

REACTIONS (1)
  - COVID-19 [Not Recovered/Not Resolved]
